FAERS Safety Report 5675096-X (Version None)
Quarter: 2008Q1

REPORT INFORMATION
  Report Type: 
  Country: None (occurrence: None)
  Receive Date: 20080320
  Receipt Date: 20080310
  Transmission Date: 20080703
  Serious: Yes (Other)
  Sender: FDA-Public Use
  Company Number: US-JNJFOC-20080303248

PATIENT
  Sex: Female

DRUGS (7)
  1. DURAGESIC-100 [Suspect]
     Indication: ARTHRALGIA
     Route: 062
  2. DURAGESIC-100 [Suspect]
     Indication: BACK PAIN
     Route: 062
  3. TYLENOL W/ CODEINE NO. 3 [Concomitant]
     Indication: PAIN
     Route: 048
  4. VALIUM [Concomitant]
     Indication: PAIN
     Route: 048
  5. ATACARD [Concomitant]
     Indication: PAIN
     Route: 048
  6. TOPROL-XL [Concomitant]
     Indication: PAIN
  7. ZOCOR [Concomitant]
     Route: 048

REACTIONS (4)
  - DRUG EFFECT DECREASED [None]
  - ENDOSCOPY GASTROINTESTINAL [None]
  - HERNIA [None]
  - X-RAY WITH CONTRAST UPPER GASTROINTESTINAL TRACT [None]
